FAERS Safety Report 9148764 (Version 2)
Quarter: 2013Q2

REPORT INFORMATION
  Report Type: Spontaneous
  Country: DE (occurrence: DE)
  Receive Date: 20130308
  Receipt Date: 20130513
  Transmission Date: 20140414
  Serious: Yes (Death, Life-Threatening, Other)
  Sender: FDA-Public Use
  Company Number: DE-JNJFOC-20130214391

PATIENT
  Age: 85 Year
  Sex: Female

DRUGS (15)
  1. HALDOL [Suspect]
     Indication: PRODUCT USED FOR UNKNOWN INDICATION
     Route: 048
     Dates: start: 20120722, end: 20120723
  2. HALDOL [Suspect]
     Indication: PRODUCT USED FOR UNKNOWN INDICATION
     Route: 048
     Dates: start: 20120715, end: 20120721
  3. HALDOL [Suspect]
     Indication: PRODUCT USED FOR UNKNOWN INDICATION
     Route: 048
     Dates: start: 20120712, end: 20120714
  4. HALDOL [Suspect]
     Indication: PRODUCT USED FOR UNKNOWN INDICATION
     Route: 048
     Dates: start: 20120724
  5. ELONTRIL [Interacting]
     Indication: PRODUCT USED FOR UNKNOWN INDICATION
     Route: 065
     Dates: end: 20120725
  6. ELONTRIL [Interacting]
     Indication: PRODUCT USED FOR UNKNOWN INDICATION
     Route: 065
     Dates: start: 20120721, end: 20120724
  7. ELONTRIL [Interacting]
     Indication: PRODUCT USED FOR UNKNOWN INDICATION
     Route: 065
     Dates: start: 20120719, end: 20120720
  8. LORAZEPAM [Suspect]
     Indication: PRODUCT USED FOR UNKNOWN INDICATION
     Route: 048
     Dates: start: 20120724, end: 20120725
  9. DIAZEPAM [Suspect]
     Indication: PRODUCT USED FOR UNKNOWN INDICATION
     Route: 048
     Dates: start: 20120719, end: 20120721
  10. DIAZEPAM [Suspect]
     Indication: PRODUCT USED FOR UNKNOWN INDICATION
     Dosage: 10-15 MG
     Route: 048
     Dates: start: 20120714, end: 20120718
  11. DIAZEPAM [Suspect]
     Indication: PRODUCT USED FOR UNKNOWN INDICATION
     Route: 048
     Dates: start: 20120722, end: 20120724
  12. HCT HEXAL [Concomitant]
     Indication: DIURETIC THERAPY
     Route: 048
     Dates: end: 20120730
  13. VALSARTAN [Concomitant]
     Indication: HYPERTENSION
     Route: 048
     Dates: end: 20120730
  14. BISOPROLOL [Concomitant]
     Indication: PRODUCT USED FOR UNKNOWN INDICATION
     Route: 048
     Dates: end: 20120730
  15. CORIFEO [Concomitant]
     Indication: HYPERTENSION
     Route: 048
     Dates: end: 20120730

REACTIONS (12)
  - Drug interaction [Unknown]
  - Toxicity to various agents [Fatal]
  - Circulatory collapse [Fatal]
  - Parkinsonism [Unknown]
  - Myocardial infarction [Unknown]
  - Pneumonia [Unknown]
  - Condition aggravated [Unknown]
  - Blood pressure increased [Unknown]
  - Mastication disorder [Unknown]
  - Tachycardia [Unknown]
  - Dysphagia [Unknown]
  - Hypoventilation [Unknown]
